FAERS Safety Report 22304442 (Version 1)
Quarter: 2023Q2

REPORT INFORMATION
  Report Type: Report from Study
  Country: RO (occurrence: RO)
  Receive Date: 20230510
  Receipt Date: 20230510
  Transmission Date: 20230721
  Serious: Yes (Hospitalization)
  Sender: FDA-Public Use
  Company Number: RO-002147023-NVSC2023RO100185

PATIENT

DRUGS (1)
  1. RUXOLITINIB [Suspect]
     Active Substance: RUXOLITINIB
     Indication: Blood disorder
     Dosage: 15 MG, BID (2X/ DAY)
     Route: 048
     Dates: start: 2022

REACTIONS (3)
  - COVID-19 [Not Recovered/Not Resolved]
  - Product use in unapproved indication [Unknown]
  - Kidney infection [Unknown]

NARRATIVE: CASE EVENT DATE: 20220101
